FAERS Safety Report 6848402-8 (Version None)
Quarter: 2010Q3

REPORT INFORMATION
  Report Type: 
  Country: None (occurrence: None)
  Receive Date: 20100716
  Receipt Date: 20100706
  Transmission Date: 20110219
  Serious: Yes (Other)
  Sender: FDA-Public Use
  Company Number: US-ROCHE-715258

PATIENT
  Sex: Female
  Weight: 61.2 kg

DRUGS (2)
  1. ACCUTANE [Suspect]
     Route: 048
     Dates: start: 19900201, end: 19900802
  2. ACCUTANE [Suspect]
     Route: 048
     Dates: start: 19970101

REACTIONS (1)
  - ABORTION INCOMPLETE [None]
